FAERS Safety Report 7659020-6 (Version None)
Quarter: 2011Q3

REPORT INFORMATION
  Report Type: 
  Country: None (occurrence: None)
  Receive Date: 20110805
  Receipt Date: 20110728
  Transmission Date: 20111222
  Serious: Yes (Hospitalization, Other)
  Sender: FDA-Public Use
  Company Number: US-BAYER-201036555NA

PATIENT
  Age: 22 Year
  Sex: Female
  Weight: 63.492 kg

DRUGS (6)
  1. DROSPIRENONE AND ETHINYL ESTRADIOL [Suspect]
     Indication: ACNE
  2. DROSPIRENONE AND ETHINYL ESTRADIOL [Suspect]
     Indication: CONTRACEPTION
     Dosage: UNK
     Dates: start: 20020801, end: 20090101
  3. DROSPIRENONE AND ETHINYL ESTRADIOL [Suspect]
     Indication: MUSCLE SPASMS
  4. YASMIN [Suspect]
     Indication: CONTRACEPTION
     Dosage: UNK
     Route: 048
     Dates: start: 20020801, end: 20090101
  5. YASMIN [Suspect]
     Indication: ACNE
  6. YASMIN [Suspect]
     Indication: MUSCLE SPASMS

REACTIONS (8)
  - CHOLELITHIASIS [None]
  - GALLBLADDER DISORDER [None]
  - BILE DUCT STONE [None]
  - ABDOMINAL PAIN UPPER [None]
  - DYSPEPSIA [None]
  - GASTRIC DISORDER [None]
  - CHOLECYSTITIS ACUTE [None]
  - CHOLECYSTITIS CHRONIC [None]
